FAERS Safety Report 8845973 (Version 1)
Quarter: 2012Q4

REPORT INFORMATION
  Report Type: 
  Country: US (occurrence: US)
  Receive Date: 20121017
  Receipt Date: 20121017
  Transmission Date: 20130627
  Serious: Yes (Death)
  Sender: FDA-Public Use
  Company Number: US-ROCHE-1130098

PATIENT
  Sex: Female

DRUGS (3)
  1. HERCEPTIN [Suspect]
     Indication: BREAST CANCER
     Dosage: loading dose 300 mg
     Route: 065
     Dates: start: 19990113
  2. HERCEPTIN [Suspect]
     Dosage: maintenance dose 151 mg
     Route: 065
  3. CISPLATINUM [Concomitant]

REACTIONS (2)
  - Overdose [Unknown]
  - Death [Fatal]
